FAERS Safety Report 4880321-9 (Version None)
Quarter: 2006Q1

REPORT INFORMATION
  Report Type: 
  Country: None (occurrence: None)
  Receive Date: 20060113
  Receipt Date: 19970707
  Transmission Date: 20060701
  Serious: Yes (Other)
  Sender: FDA-Public Use
  Company Number: AU-ROCHE-84190

PATIENT
  Age: 30 Year
  Sex: Female

DRUGS (2)
  1. ROACCUTANE [Suspect]
     Indication: ACNE
     Route: 048
     Dates: start: 19970113, end: 19970329
  2. ETHINYLESTRADIOL+GESTODENE [Concomitant]
     Indication: CONTRACEPTION
     Route: 048
     Dates: end: 19970415

REACTIONS (2)
  - ABORTION INDUCED [None]
  - DRUG EXPOSURE BEFORE PREGNANCY [None]
